FAERS Safety Report 24756896 (Version 2)
Quarter: 2025Q3

REPORT INFORMATION
  Report Type: Spontaneous
  Country: US (occurrence: US)
  Receive Date: 20241220
  Receipt Date: 20250810
  Transmission Date: 20251020
  Serious: No
  Sender: ALEXION PHARMACEUTICALS
  Company Number: US-AstraZeneca-CH-00772041A

PATIENT
  Sex: Female

DRUGS (1)
  1. BYDUREON BCISE [Suspect]
     Active Substance: EXENATIDE

REACTIONS (13)
  - Blood test [Unknown]
  - Analgesic therapy [Unknown]
  - Injection site mass [Unknown]
  - Incorrect dose administered [Unknown]
  - Feeding disorder [Unknown]
  - Abdominal distension [Unknown]
  - Incorrect dose administered [Unknown]
  - Needle issue [Unknown]
  - Incorrect dose administered [Unknown]
  - Wrong technique in device usage process [Unknown]
  - Needle issue [Unknown]
  - Injection site haemorrhage [Unknown]
  - Contusion [Not Recovered/Not Resolved]
